FAERS Safety Report 7734147-9 (Version None)
Quarter: 2011Q3

REPORT INFORMATION
  Report Type: 
  Country: None (occurrence: None)
  Receive Date: 20110902
  Receipt Date: 20110824
  Transmission Date: 20111222
  Serious: Yes (Death, Hospitalization)
  Sender: FDA-Public Use
  Company Number: 2011S1000824

PATIENT
  Age: 74 Year
  Sex: Male
  Weight: 67.2 kg

DRUGS (7)
  1. FAMOTIDINE [Concomitant]
  2. INDERAL /00030002/ [Concomitant]
  3. LIVALO [Suspect]
     Indication: HYPERCHOLESTEROLAEMIA
     Dosage: 1 MG; 1X; PO
     Route: 048
     Dates: start: 20110128, end: 20110401
  4. ISOSORBIDE MONONITRATE [Concomitant]
  5. MUCOSTA [Concomitant]
  6. URSO /00465701/ [Concomitant]
  7. ASPIRIN [Concomitant]

REACTIONS (14)
  - FUNCTIONAL GASTROINTESTINAL DISORDER [None]
  - THROMBOCYTOPENIA [None]
  - WOUND INFECTION [None]
  - RASH [None]
  - HAEMODYNAMIC INSTABILITY [None]
  - WOUND DEHISCENCE [None]
  - CONTINUOUS HAEMODIAFILTRATION [None]
  - HERPES ZOSTER [None]
  - SMALL INTESTINAL HAEMORRHAGE [None]
  - SHOCK [None]
  - HEPATIC CIRRHOSIS [None]
  - SOMNOLENCE [None]
  - HEADACHE [None]
  - PNEUMONIA STAPHYLOCOCCAL [None]
